FAERS Safety Report 13832794 (Version 1)
Quarter: 2017Q3

REPORT INFORMATION
  Report Type: Spontaneous
  Country: SE (occurrence: SE)
  Receive Date: 20170804
  Receipt Date: 20170804
  Transmission Date: 20171127
  Serious: Yes (Hospitalization)
  Sender: FDA-Public Use
  Company Number: SE-ORION CORPORATION ORION PHARMA-BUHY2017-0003

PATIENT
  Age: 56 Year
  Sex: Male

DRUGS (1)
  1. BUSPIRONE [Suspect]
     Active Substance: BUSPIRONE HYDROCHLORIDE
     Dosage: STRENGTH: 10 MG
     Route: 048

REACTIONS (2)
  - Seizure [Recovered/Resolved]
  - Swelling face [Recovered/Resolved]
